FAERS Safety Report 6978007-X (Version None)
Quarter: 2010Q3

REPORT INFORMATION
  Report Type: 
  Country: None (occurrence: None)
  Receive Date: 20100913
  Receipt Date: 20100827
  Transmission Date: 20110219
  Serious: No
  Sender: FDA-Public Use
  Company Number: US-PFIZER INC-2010016648

PATIENT
  Sex: Female

DRUGS (2)
  1. CHANTIX [Suspect]
     Indication: SMOKING CESSATION THERAPY
     Dosage: UNK
  2. CHANTIX [Suspect]
     Dosage: 1 MG, UNK
     Route: 048
     Dates: end: 20100501

REACTIONS (4)
  - MALAISE [None]
  - NAUSEA [None]
  - PAIN [None]
  - VOMITING [None]
